FAERS Safety Report 24463573 (Version 1)
Quarter: 2024Q4

REPORT INFORMATION
  Report Type: Report from Study
  Country: US (occurrence: US)
  Receive Date: 20241018
  Receipt Date: 20241018
  Transmission Date: 20250114
  Serious: No
  Sender: ROCHE
  Company Number: US-ROCHE-3287248

PATIENT
  Age: 70 Year
  Sex: Female
  Weight: 270.0 kg

DRUGS (26)
  1. XOLAIR [Suspect]
     Active Substance: OMALIZUMAB
     Indication: Asthma
     Dosage: INJECT BILATERAL ARMS
     Route: 058
  2. XOLAIR [Suspect]
     Active Substance: OMALIZUMAB
     Indication: Urticaria
  3. XOLAIR [Suspect]
     Active Substance: OMALIZUMAB
     Indication: Immunodeficiency common variable
  4. POTASSIUM CHLORIDE [Concomitant]
     Active Substance: POTASSIUM CHLORIDE
  5. LEVALBUTEROL HYDROCHLORIDE [Concomitant]
     Active Substance: LEVALBUTEROL HYDROCHLORIDE
  6. VALSARTAN [Concomitant]
     Active Substance: VALSARTAN
  7. DALIRESP [Concomitant]
     Active Substance: ROFLUMILAST
  8. CLONIDINE [Concomitant]
     Active Substance: CLONIDINE
  9. KLOR-CON M10 [Concomitant]
     Active Substance: POTASSIUM CHLORIDE
  10. EDECRINE [Concomitant]
  11. XOPENEX [Concomitant]
     Active Substance: LEVALBUTEROL HYDROCHLORIDE
  12. SPIRIVA [Concomitant]
     Active Substance: TIOTROPIUM BROMIDE MONOHYDRATE
  13. DIOVAN [Concomitant]
     Active Substance: VALSARTAN
  14. PLAVIX [Concomitant]
     Active Substance: CLOPIDOGREL BISULFATE
  15. REPATHA [Concomitant]
     Active Substance: EVOLOCUMAB
  16. GAMMAGARD S/D [Concomitant]
     Active Substance: HUMAN IMMUNOGLOBULIN G
  17. FORMOTEROL [Concomitant]
     Active Substance: FORMOTEROL
  18. CARISOPRODOL [Concomitant]
     Active Substance: CARISOPRODOL
  19. XYZAL [Concomitant]
     Active Substance: LEVOCETIRIZINE DIHYDROCHLORIDE
  20. MATZIM LA [Concomitant]
     Active Substance: DILTIAZEM HYDROCHLORIDE
  21. ZOFRAN [Concomitant]
     Active Substance: ONDANSETRON HYDROCHLORIDE
  22. SINGULAIR [Concomitant]
     Active Substance: MONTELUKAST SODIUM
  23. VITAMIN E [Concomitant]
     Active Substance: .ALPHA.-TOCOPHEROL
  24. CALCIUM [Concomitant]
     Active Substance: CALCIUM
  25. METAMUCIL [Concomitant]
     Active Substance: PLANTAGO SEED
  26. VITAMIN D3 [Concomitant]
     Active Substance: CHOLECALCIFEROL

REACTIONS (5)
  - Off label use [Unknown]
  - Obstructive sleep apnoea syndrome [Unknown]
  - Weight decreased [Unknown]
  - Arthralgia [Unknown]
  - Myalgia [Unknown]
